FAERS Safety Report 7313298-7 (Version None)
Quarter: 2011Q1

REPORT INFORMATION
  Report Type: 
  Country: None (occurrence: None)
  Receive Date: 20110215
  Receipt Date: 20110215
  Transmission Date: 20110831
  Serious: No
  Sender: FDA-Public Use
  Company Number: None

PATIENT
  Sex: Female
  Weight: 63.5036 kg

DRUGS (2)
  1. ANASTROZOLE [Suspect]
     Indication: BREAST CANCER
     Dosage: 1 MG DAILY PO
     Route: 048
     Dates: start: 20110209, end: 20110211
  2. ANASTROZOLE [Suspect]
     Indication: BREAST CANCER
     Dosage: 1 MG DAILY PO
     Route: 048
     Dates: start: 20110126, end: 20110202

REACTIONS (13)
  - HEADACHE [None]
  - PALPITATIONS [None]
  - ASTHENIA [None]
  - PRODUCT SUBSTITUTION ISSUE [None]
  - FATIGUE [None]
  - NECK PAIN [None]
  - BACK PAIN [None]
  - PAIN IN JAW [None]
  - ACTIVITIES OF DAILY LIVING IMPAIRED [None]
  - PAIN IN EXTREMITY [None]
  - ARTHRALGIA [None]
  - CHEST DISCOMFORT [None]
  - MUSCULOSKELETAL PAIN [None]
